FAERS Safety Report 14579394 (Version 2)
Quarter: 2018Q2

REPORT INFORMATION
  Report Type: Report from Study
  Country: US (occurrence: US)
  Receive Date: 20180227
  Receipt Date: 20180412
  Transmission Date: 20180711
  Serious: Yes (Hospitalization)
  Sender: FDA-Public Use
  Company Number: US-EXELIXIS-CABO-18011921

PATIENT
  Age: 73 Year
  Sex: Female

DRUGS (15)
  1. VITAMIN D [Concomitant]
     Active Substance: CHOLECALCIFEROL
  2. SYNTHROID [Concomitant]
     Active Substance: LEVOTHYROXINE SODIUM
  3. MAG-OX [Concomitant]
     Active Substance: MAGNESIUM OXIDE
  4. ZOLOFT [Concomitant]
     Active Substance: SERTRALINE HYDROCHLORIDE
  5. ASA [Concomitant]
     Active Substance: ASPIRIN
  6. COMETRIQ [Suspect]
     Active Substance: CABOZANTINIB S-MALATE
     Dosage: 100 MG, QD
     Route: 048
     Dates: start: 201608
  7. SERTRALINE [Concomitant]
     Active Substance: SERTRALINE HYDROCHLORIDE
  8. PLAVIX [Concomitant]
     Active Substance: CLOPIDOGREL BISULFATE
  9. MULTIVITAMIN [Concomitant]
     Active Substance: VITAMINS
  10. PEPCID [Concomitant]
     Active Substance: FAMOTIDINE
  11. COMETRIQ [Suspect]
     Active Substance: CABOZANTINIB S-MALATE
     Indication: THYROID CANCER
     Dosage: 140 MG, QD
     Route: 048
     Dates: start: 20160418, end: 201606
  12. COMETRIQ [Suspect]
     Active Substance: CABOZANTINIB S-MALATE
     Dosage: 100 MG, QD
     Route: 048
     Dates: end: 20180114
  13. LIPITOR [Concomitant]
     Active Substance: ATORVASTATIN CALCIUM
  14. OSCAL [Concomitant]
     Active Substance: CALCIUM CARBONATE
  15. KCL [Concomitant]
     Active Substance: POTASSIUM CHLORIDE

REACTIONS (4)
  - Carotid artery aneurysm [Recovered/Resolved]
  - Carotid arteriosclerosis [Recovered/Resolved]
  - Mental status changes [Recovered/Resolved]
  - Vascular malformation [Recovered/Resolved]

NARRATIVE: CASE EVENT DATE: 20171117
